FAERS Safety Report 9778310 (Version 1)
Quarter: 2013Q4

REPORT INFORMATION
  Report Type: Spontaneous
  Country: US (occurrence: US)
  Receive Date: 20131223
  Receipt Date: 20131223
  Transmission Date: 20140711
  Serious: No
  Sender: FDA-Public Use
  Company Number: 2013SP003795

PATIENT
  Age: 61 Year
  Sex: Female
  Weight: 95.24 kg

DRUGS (17)
  1. CEFALEXIN [Suspect]
     Indication: PRODUCT USED FOR UNKNOWN INDICATION
  2. METHOTREXATE SODIUM [Suspect]
     Indication: PRODUCT USED FOR UNKNOWN INDICATION
  3. MELOXICAM [Suspect]
     Indication: PRODUCT USED FOR UNKNOWN INDICATION
  4. ENBREL [Concomitant]
     Indication: RHEUMATOID ARTHRITIS
     Route: 058
     Dates: end: 2010
  5. GLICLAZIDE [Concomitant]
  6. UBIDECARENONE [Concomitant]
  7. FENOFIBRATE [Concomitant]
  8. CYCLOBENZAPRINE [Concomitant]
  9. LEVOTHYROXINE [Concomitant]
  10. LISINOPRIL [Concomitant]
  11. PREDNISONE [Concomitant]
  12. ULTRAM [Concomitant]
  13. ASCORBIC ACID [Concomitant]
  14. ERGOCALCIFEROL [Concomitant]
  15. TOCOPHEROL [Concomitant]
  16. ZYRTEC [Concomitant]
  17. ACETYLSALICYLIC ACID [Concomitant]

REACTIONS (1)
  - Drug hypersensitivity [Unknown]
